FAERS Safety Report 6932689-7 (Version None)
Quarter: 2010Q3

REPORT INFORMATION
  Report Type: 
  Country: None (occurrence: None)
  Receive Date: 20100819
  Receipt Date: 20100811
  Transmission Date: 20110219
  Serious: Yes (Hospitalization)
  Sender: FDA-Public Use
  Company Number: IN-JNJFOC-20100804377

PATIENT
  Sex: Female

DRUGS (4)
  1. ACETAMINOPHEN [Suspect]
     Route: 065
  2. ACETAMINOPHEN [Suspect]
     Indication: VIRAL INFECTION
     Route: 065
  3. IBUPROFEN [Suspect]
     Indication: VIRAL INFECTION
  4. ALL OTHER THERAPEUTIC PRODUCTS [Concomitant]
     Indication: VIRAL INFECTION
     Route: 065

REACTIONS (1)
  - STEVENS-JOHNSON SYNDROME [None]
